FAERS Safety Report 7805605-3 (Version None)
Quarter: 2011Q4

REPORT INFORMATION
  Report Type: 
  Country: None (occurrence: None)
  Receive Date: 20111010
  Receipt Date: 20110930
  Transmission Date: 20120403
  Serious: Yes (Life-Threatening, Hospitalization)
  Sender: FDA-Public Use
  Company Number: JP-ASTRAZENECA-2011SE56245

PATIENT
  Age: 16874 Day
  Sex: Male

DRUGS (14)
  1. ZYPREXA [Suspect]
     Indication: SCHIZOPHRENIA
     Route: 048
     Dates: end: 20110905
  2. PROMETHAZINE HCL [Concomitant]
     Indication: PARKINSONISM
     Dates: end: 20110913
  3. HYPNOTICS AND SEDATIVES [Concomitant]
     Dates: end: 20110913
  4. SELBEX [Concomitant]
     Indication: GASTRIC ULCER
     Dates: end: 20110913
  5. SEROQUEL [Suspect]
     Indication: SCHIZOPHRENIA
     Route: 048
     Dates: end: 20110905
  6. SEROQUEL [Suspect]
     Route: 048
     Dates: start: 20110906, end: 20110912
  7. DEPROMEL [Concomitant]
     Indication: SCHIZOPHRENIA
     Dates: end: 20110913
  8. ZYPREXA [Suspect]
     Route: 048
     Dates: start: 20110906, end: 20110912
  9. LEXOTAN [Concomitant]
     Indication: SCHIZOPHRENIA
     Dates: end: 20110913
  10. RISPERDAL [Concomitant]
     Indication: SCHIZOPHRENIA
     Dates: end: 20110906
  11. ARTANE [Concomitant]
     Indication: PARKINSONISM
     Dates: end: 20110913
  12. ALLOPURINOL [Concomitant]
     Indication: GOUT
     Dates: end: 20110912
  13. ROHYPNOL [Concomitant]
     Indication: SCHIZOPHRENIA
     Dates: end: 20110913
  14. PROMAZINE HYDROCHLORIDE [Concomitant]
     Indication: SCHIZOPHRENIA
     Dates: end: 20110912

REACTIONS (3)
  - NEUTROPENIA [None]
  - SEPSIS [None]
  - DISSEMINATED INTRAVASCULAR COAGULATION [None]
